FAERS Safety Report 5213516-5 (Version None)
Quarter: 2007Q1

REPORT INFORMATION
  Report Type: 
  Country: None (occurrence: None)
  Receive Date: 20070119
  Receipt Date: 20070117
  Transmission Date: 20070707
  Serious: Yes (Hospitalization)
  Sender: FDA-Public Use
  Company Number: US-BRISTOL-MYERS SQUIBB COMPANY-13645395

PATIENT
  Sex: Female

DRUGS (4)
  1. CISPLATIN [Suspect]
     Indication: NEOPLASM MALIGNANT
     Dates: start: 20060601, end: 20061201
  2. LISINOPRIL [Concomitant]
  3. ATIVAN [Concomitant]
  4. INDERAL [Concomitant]

REACTIONS (3)
  - BLOOD GLUCOSE INCREASED [None]
  - NEUROPATHY [None]
  - PULMONARY OEDEMA [None]
